FAERS Safety Report 24841707 (Version 1)
Quarter: 2025Q1

REPORT INFORMATION
  Report Type: Spontaneous
  Country: US (occurrence: US)
  Receive Date: 20250114
  Receipt Date: 20250114
  Transmission Date: 20250409
  Serious: No
  Sender: PFIZER
  Company Number: US-PFIZER INC-PV202500004813

PATIENT
  Age: 64 Year
  Sex: Male

DRUGS (6)
  1. AZULFIDINE [Suspect]
     Active Substance: SULFASALAZINE
  2. AMPICILLIN [Concomitant]
     Active Substance: AMPICILLIN
  3. CODEINE [Concomitant]
     Active Substance: CODEINE
  4. CYCLOBENZAPRINE [Concomitant]
     Active Substance: CYCLOBENZAPRINE
  5. PHENOTHIAZINE [Concomitant]
     Active Substance: PHENOTHIAZINE
  6. DILAUDID [Concomitant]
     Active Substance: HYDROMORPHONE HYDROCHLORIDE

REACTIONS (1)
  - Drug intolerance [Unknown]
